FAERS Safety Report 4790165-4 (Version None)
Quarter: 2005Q4

REPORT INFORMATION
  Report Type: 
  Country: None (occurrence: None)
  Receive Date: 20051006
  Receipt Date: 20050926
  Transmission Date: 20060501
  Serious: Yes (Other)
  Sender: FDA-Public Use
  Company Number: ID-ROCHE-418934

PATIENT
  Age: 90 Year
  Sex: Female
  Weight: 0.5 kg

DRUGS (1)
  1. ROCEPHIN [Suspect]
     Indication: SEPSIS
     Dosage: REPORTED AS 2X2G.
     Route: 042
     Dates: start: 20050715, end: 20050715

REACTIONS (1)
  - PATHOGEN RESISTANCE [None]
